FAERS Safety Report 9563271 (Version 25)
Quarter: 2025Q2

REPORT INFORMATION
  Report Type: Spontaneous
  Country: CA (occurrence: CA)
  Receive Date: 20130927
  Receipt Date: 20250527
  Transmission Date: 20250716
  Serious: Yes (Life-Threatening, Hospitalization, Other)
  Sender: MERCK SHARP & DOHME LLC
  Company Number: None

PATIENT
  Age: 56 Year
  Sex: Female
  Weight: 89 kg

DRUGS (57)
  1. JANUVIA [Suspect]
     Active Substance: SITAGLIPTIN PHOSPHATE
     Indication: Product used for unknown indication
     Dosage: DOSE DESCRIPTION : 100 MILLIGRAM 1 EVERY 1 DAY?DAILY DOSE : 100 MILLIGRAM?CONCENTRATION: 100 MILL...
     Route: 048
  2. JANUVIA [Suspect]
     Active Substance: SITAGLIPTIN PHOSPHATE
     Indication: Product used for unknown indication
     Route: 048
  3. JANUVIA [Suspect]
     Active Substance: SITAGLIPTIN PHOSPHATE
     Indication: Product used for unknown indication
     Dosage: DOSE DESCRIPTION : 100 MILLIGRAM 1 EVERY 1 DAY?DAILY DOSE : 100 MILLIGRAM?CONCENTRATION: 100 MILL...
     Route: 048
  4. LIPITOR [Suspect]
     Active Substance: ATORVASTATIN CALCIUM
     Indication: Product used for unknown indication
     Dosage: DOSE DESCRIPTION : 20 MILLIGRAM  1 EVERY 1 DAY?DAILY DOSE : 20 MILLIGRAM
     Route: 048
  5. LIPITOR [Suspect]
     Active Substance: ATORVASTATIN CALCIUM
     Indication: Product used for unknown indication
     Dosage: DOSE DESCRIPTION : 1 DOSAGE FORM 1 EVERY 1 DAY (QD)?DAILY DOSE : 1 DOSAGE FORM
     Route: 048
  6. RASILEZ [Suspect]
     Active Substance: ALISKIREN
     Indication: Hypertension
     Dosage: DOSE DESCRIPTION : 150 MILLIGRAM, 1 EVERY 1 DAY (QD)?DAILY DOSE : 150 MILLIGRAM?REGIMEN DOSE : 88...
     Route: 048
     Dates: start: 20111205, end: 20120202
  7. RASILEZ [Suspect]
     Active Substance: ALISKIREN
     Indication: Hypertension
     Route: 048
  8. RASILEZ [Suspect]
     Active Substance: ALISKIREN
     Indication: Hypertension
     Route: 048
  9. IRBESARTAN [Suspect]
     Active Substance: IRBESARTAN
     Indication: Hypertension
     Dosage: DOSE DESCRIPTION : 300 MILLIGRAM 1 EVERY 1 DAY (QD)?DAILY DOSE : 300 MILLIGRAM?CONCENTRATION: 300...
     Route: 048
     Dates: start: 201101
  10. IRBESARTAN [Suspect]
     Active Substance: IRBESARTAN
     Indication: Hypertension
     Dosage: DOSE DESCRIPTION : 300 MG, 1 X/DAY?DAILY DOSE : 300 MILLIGRAM
     Route: 048
  11. IRBESARTAN [Suspect]
     Active Substance: IRBESARTAN
     Indication: Hypertension
     Dosage: DOSE DESCRIPTION : 1 DOSAGE FORM, 1 EVERY 1 DAYS DAILY DOSE : 1 DOSAGE FORM
     Route: 048
  12. IRBESARTAN [Suspect]
     Active Substance: IRBESARTAN
     Indication: Hypertension
     Dosage: DOSE DESCRIPTION : 150 MILLIGRAM, 1 EVERY 1 DAY (QD) DAILY DOSE : 150 MILLIGRAM CONCENTRATION: 15...
     Route: 048
  13. IRBESARTAN [Suspect]
     Active Substance: IRBESARTAN
     Indication: Hypertension
     Dosage: DOSE DESCRIPTION : 150 MILLIGRAM, 1 EVERY 1 DAY (QD)?DAILY DOSE : 150 MILLIGRAM?CONCENTRATION: 15...
     Route: 048
  14. METFORMIN HYDROCHLORIDE [Suspect]
     Active Substance: METFORMIN HYDROCHLORIDE
     Indication: Product used for unknown indication
     Dosage: DOSE DESCRIPTION : 3 DOSAGE FORM, QD?DAILY DOSE : 3 DOSAGE FORM
     Route: 048
  15. METFORMIN HYDROCHLORIDE [Suspect]
     Active Substance: METFORMIN HYDROCHLORIDE
     Indication: Product used for unknown indication
     Dosage: DOSE DESCRIPTION : 850 MILLIGRAM, 3 EVERY 1 DAYS (TID)?DAILY DOSE : 2550 MILLIGRAM
     Route: 048
  16. METFORMIN HYDROCHLORIDE [Suspect]
     Active Substance: METFORMIN HYDROCHLORIDE
     Indication: Product used for unknown indication
     Dosage: DOSE DESCRIPTION : 85 MILLIGRAM, 3 EVERY 1 DAYS (TID)?DAILY DOSE : 255 MILLIGRAM
     Route: 048
  17. METFORMIN HYDROCHLORIDE [Suspect]
     Active Substance: METFORMIN HYDROCHLORIDE
     Indication: Product used for unknown indication
     Route: 048
  18. IRBESARTAN [Suspect]
     Active Substance: IRBESARTAN
     Indication: Hypertension
     Dosage: DOSE DESCRIPTION : 300 MILLIGRAM 1 EVERY 1 DAYS (QD)?DAILY DOSE : 300 MILLIGRAM
     Route: 048
  19. IRBESARTAN [Suspect]
     Active Substance: IRBESARTAN
     Indication: Hypertension
     Dosage: DOSE DESCRIPTION : 1 DOSAGE FORMS, 1 EVERY 1 DAY (QD)?DAILY DOSE : 1 DOSAGE FORM
     Route: 048
  20. IRBESARTAN [Suspect]
     Active Substance: IRBESARTAN
     Indication: Hypertension
     Dosage: DOSE DESCRIPTION : 150 MG 1 EVERY 1 DAY (QD)?DAILY DOSE : 150 MILLIGRAM
     Route: 048
  21. IRBESARTAN [Suspect]
     Active Substance: IRBESARTAN
     Indication: Hypertension
     Route: 048
  22. AMLODIPINE [Suspect]
     Active Substance: AMLODIPINE BESYLATE
     Indication: Product used for unknown indication
     Dosage: DOSE DESCRIPTION : 5 MILLIGRAM, 1 EVERY 1 DAYS (QD)?DAILY DOSE : 5 MILLIGRAM
     Route: 048
  23. AMLODIPINE [Suspect]
     Active Substance: AMLODIPINE BESYLATE
     Indication: Product used for unknown indication
     Dosage: DOSE DESCRIPTION : 1 DOSAGE FORM, 1 EVERY 1 DAY (QD)?DAILY DOSE : 1 DOSAGE FORM
     Route: 048
  24. AMLODIPINE [Suspect]
     Active Substance: AMLODIPINE BESYLATE
     Indication: Product used for unknown indication
     Dosage: DOSE DESCRIPTION : 50 MILLIGRAM, 1 EVERY 1 DAYS (QD)?DAILY DOSE : 50 MILLIGRAM
     Route: 048
  25. ALISKIREN [Suspect]
     Active Substance: ALISKIREN
     Indication: Hypertension
     Dosage: DOSE DESCRIPTION : 150 MILLIGRAM, 1 EVERY 1 DAY (QD)?DAILY DOSE : 150 MILLIGRAM?REGIMEN DOSE : 90...
     Route: 048
  26. ALISKIREN [Suspect]
     Active Substance: ALISKIREN
     Indication: Hypertension
     Dosage: DOSE DESCRIPTION : 1 DOSAGE FORM, 1 EVERY 1 DAY (QD)?DAILY DOSE : 1 DOSAGE FORM
     Route: 048
  27. ALISKIREN HEMIFUMARATE [Suspect]
     Active Substance: ALISKIREN HEMIFUMARATE
     Indication: Microalbuminuria
     Dosage: DOSE DESCRIPTION : 1 DOSAGE FORM, 1 EVERY 1 DAY (QD)?DAILY DOSE : 1 DOSAGE FORM
     Route: 048
  28. ALISKIREN HEMIFUMARATE [Suspect]
     Active Substance: ALISKIREN HEMIFUMARATE
     Indication: Microalbuminuria
     Dosage: DOSE DESCRIPTION : 150 MILLIGRAM, 1 EVERY 1 DAY (QD)?DAILY DOSE : 150 MILLIGRAM?REGIMEN DOSE : 90...
     Route: 048
  29. ALISKIREN HEMIFUMARATE [Suspect]
     Active Substance: ALISKIREN HEMIFUMARATE
     Indication: Microalbuminuria
     Route: 048
  30. ALISKIREN HEMIFUMARATE [Suspect]
     Active Substance: ALISKIREN HEMIFUMARATE
     Indication: Microalbuminuria
     Dosage: DOSE DESCRIPTION : 300 MILLIGRAM, 1 EVERY 1 DAYS DAILY DOSE : 300 MILLIGRAM
     Route: 048
  31. ASPIRIN [Suspect]
     Active Substance: ASPIRIN
     Indication: Product used for unknown indication
     Dosage: DOSE DESCRIPTION : 80 MILLIGRAM, 1 EVERY 1 DAY (QD)?DAILY DOSE : 80 MILLIGRAM
     Route: 048
  32. ASPIRIN [Suspect]
     Active Substance: ASPIRIN
     Indication: Product used for unknown indication
     Route: 048
  33. ASPIRIN [Suspect]
     Active Substance: ASPIRIN
     Indication: Product used for unknown indication
     Route: 048
  34. AMLODIPINE BESYLATE [Suspect]
     Active Substance: AMLODIPINE BESYLATE
     Indication: Product used for unknown indication
     Dosage: DOSE DESCRIPTION : 1 DOSAGE FORM, 1 EVERY ONE DAYS (QD)?DAILY DOSE : 1 DOSAGE FORM
     Route: 048
  35. AMLODIPINE BESYLATE [Suspect]
     Active Substance: AMLODIPINE BESYLATE
     Indication: Product used for unknown indication
     Dosage: DOSE DESCRIPTION : 5 MILLIGRAM,1 EVERY 1 DAYS?DAILY DOSE : 5 MILLIGRAM
     Route: 048
  36. AMLODIPINE BESYLATE [Suspect]
     Active Substance: AMLODIPINE BESYLATE
     Indication: Product used for unknown indication
     Route: 048
  37. AMLODIPINE BESYLATE [Suspect]
     Active Substance: AMLODIPINE BESYLATE
     Indication: Product used for unknown indication
     Dosage: DOSE DESCRIPTION : 5 MILLIGRAM,1 EVERY 1 DAYS?DAILY DOSE : 5 MILLIGRAM
     Route: 048
  38. AMLODIPINE BESYLATE [Suspect]
     Active Substance: AMLODIPINE BESYLATE
     Indication: Product used for unknown indication
     Dosage: DOSE DESCRIPTION : 50 MILLIGRAM, 1 EVERY 24 HOURS DAILY DOSE : 50 MILLIGRAM
     Route: 048
  39. AMLODIPINE BESYLATE [Suspect]
     Active Substance: AMLODIPINE BESYLATE
     Indication: Product used for unknown indication
     Route: 048
  40. AMLODIPINE BESYLATE [Suspect]
     Active Substance: AMLODIPINE BESYLATE
     Indication: Product used for unknown indication
     Dosage: DOSE DESCRIPTION : 5.0 GRAM, 1 EVERY 1 DAYS DAILY DOSE : 5 GRAM
     Route: 048
  41. ESOMEPRAZOLE MAGNESIUM [Suspect]
     Active Substance: ESOMEPRAZOLE MAGNESIUM
     Indication: Product used for unknown indication
     Dosage: DOSE DESCRIPTION : 40 MILLIGRAM 1 EVERY 1 DAY (QD)?DAILY DOSE : 40 MILLIGRAM
     Route: 048
  42. ESOMEPRAZOLE MAGNESIUM [Suspect]
     Active Substance: ESOMEPRAZOLE MAGNESIUM
     Indication: Product used for unknown indication
     Dosage: DOSE DESCRIPTION : 1 DOSAGE FORM 1 EVERY 1 DAY (QD)?DAILY DOSE : 1 DOSAGE FORM
     Route: 048
  43. ESOMEPRAZOLE [Suspect]
     Active Substance: ESOMEPRAZOLE
     Indication: Product used for unknown indication
     Dosage: DOSE DESCRIPTION : 40 MILLIGRAM, 1 EVERY 1 DAY (QD)?DAILY DOSE : 40 MILLIGRAM
     Route: 048
  44. ESOMEPRAZOLE [Suspect]
     Active Substance: ESOMEPRAZOLE
     Indication: Product used for unknown indication
     Dosage: DOSE DESCRIPTION : 1 DOSAGE FORM, 1 EVERY ONE 1 DAY (QD)?DAILY DOSE : 1 DOSAGE FORM
     Route: 048
  45. ASPIRIN [Suspect]
     Active Substance: ASPIRIN
     Indication: Product used for unknown indication
     Dosage: DOSE DESCRIPTION : 80 MILLIGRAM, 1 EVERY 1 (DAYS)?DAILY DOSE : 80 MILLIGRAM
     Route: 048
  46. NORVASC [Suspect]
     Active Substance: AMLODIPINE BESYLATE
     Indication: Product used for unknown indication
     Dosage: DOSE DESCRIPTION : STRENGHT: 5MG, 1 DOSAGE FORM, DAILY?DAILY DOSE : 1 DOSAGE FORM
     Route: 048
  47. AVAPRO [Concomitant]
     Active Substance: IRBESARTAN
     Indication: Product used for unknown indication
     Dosage: DOSE DESCRIPTION : 1 DOSAGE FORM, QD?DAILY DOSE : 1 DOSAGE FORM
     Route: 048
  48. AVAPRO [Concomitant]
     Active Substance: IRBESARTAN
     Indication: Product used for unknown indication
     Route: 048
  49. GLUCOPHAGE [Concomitant]
     Active Substance: METFORMIN HYDROCHLORIDE
     Indication: Product used for unknown indication
     Route: 048
  50. CYANOCOBALAMIN [Concomitant]
     Active Substance: CYANOCOBALAMIN
     Indication: Product used for unknown indication
     Route: 048
  51. CYANOCOBALAMIN [Concomitant]
     Active Substance: CYANOCOBALAMIN
     Indication: Product used for unknown indication
     Dosage: DOSE DESCRIPTION : 1 DOSAGE FORM, 1 EVERY 1 (DAYS)?DAILY DOSE : 1 DOSAGE FORM
     Route: 048
  52. ASPIRIN [Concomitant]
     Active Substance: ASPIRIN
     Indication: Product used for unknown indication
     Route: 048
  53. ASPIRIN [Concomitant]
     Active Substance: ASPIRIN
     Indication: Product used for unknown indication
     Route: 048
  54. AMLODIPINE BESYLATE [Concomitant]
     Active Substance: AMLODIPINE BESYLATE
     Indication: Product used for unknown indication
     Route: 048
  55. ESOMEPRAZOLE MAGNESIUM [Concomitant]
     Active Substance: ESOMEPRAZOLE MAGNESIUM
     Indication: Product used for unknown indication
     Route: 048
  56. CYANOCOBALAMIN [Concomitant]
     Active Substance: CYANOCOBALAMIN
     Route: 048
  57. JANUMET [Suspect]
     Active Substance: METFORMIN HYDROCHLORIDE\SITAGLIPTIN PHOSPHATE
     Route: 048

REACTIONS (23)
  - Cerebrovascular accident [Recovered/Resolved with Sequelae]
  - Hemiparesis [Recovered/Resolved with Sequelae]
  - Aphasia [Recovered/Resolved with Sequelae]
  - Hemiplegia [Recovered/Resolved with Sequelae]
  - Affect lability [Recovered/Resolved with Sequelae]
  - Confusional state [Recovered/Resolved with Sequelae]
  - Dysphagia [Recovered/Resolved with Sequelae]
  - Muscle spasticity [Recovered/Resolved with Sequelae]
  - Muscular weakness [Recovered/Resolved with Sequelae]
  - Personality disorder [Recovered/Resolved with Sequelae]
  - Adjustment disorder [Recovered/Resolved with Sequelae]
  - Carotid artery thrombosis [Recovered/Resolved with Sequelae]
  - Dysarthria [Recovered/Resolved with Sequelae]
  - Eating disorder [Recovered/Resolved with Sequelae]
  - Fall [Recovered/Resolved with Sequelae]
  - Motor dysfunction [Recovered/Resolved with Sequelae]
  - Neurologic neglect syndrome [Recovered/Resolved with Sequelae]
  - Sensory loss [Recovered/Resolved with Sequelae]
  - Coordination abnormal [Recovered/Resolved with Sequelae]
  - Asthenia [Recovered/Resolved with Sequelae]
  - Anxiety [Recovered/Resolved with Sequelae]
  - Nausea [Recovered/Resolved with Sequelae]
  - Impaired work ability [Recovered/Resolved with Sequelae]

NARRATIVE: CASE EVENT DATE: 20120201
